FAERS Safety Report 15565622 (Version 1)
Quarter: 2018Q4

REPORT INFORMATION
  Report Type: Spontaneous
  Country: FR (occurrence: FR)
  Receive Date: 20181030
  Receipt Date: 20181030
  Transmission Date: 20190205
  Serious: Yes (Other)
  Sender: FDA-Public Use
  Company Number: US-BRAINTREE LABORATORIES-180525-1

PATIENT
  Age: 61 Year
  Sex: Male

DRUGS (1)
  1. IZINOVA [Suspect]
     Active Substance: MAGNESIUM SULFATE\POTASSIUM SULFATE\SODIUM SULFATE
     Dosage: 1 X 6 OZ. BOTTLE
     Route: 048
     Dates: start: 20180906, end: 20180906

REACTIONS (2)
  - Asthenia [None]
  - Nausea [None]

NARRATIVE: CASE EVENT DATE: 20180906
